FAERS Safety Report 8838916 (Version 1)
Quarter: 2012Q4

REPORT INFORMATION
  Report Type: 
  Country: DE (occurrence: SE)
  Receive Date: 20121015
  Receipt Date: 20121015
  Transmission Date: 20130627
  Serious: Yes (Other)
  Sender: FDA-Public Use
  Company Number: SE-BRISTOL-MYERS SQUIBB COMPANY-17023649

PATIENT
  Age: 33 Year
  Sex: Male

DRUGS (2)
  1. ABILIFY [Suspect]
     Route: 065
  2. CYMBALTA [Concomitant]
     Indication: DEPRESSION
     Dosage: Form: caps
     Route: 048

REACTIONS (1)
  - Mania [Recovered/Resolved]
